FAERS Safety Report 14916304 (Version 1)
Quarter: 2018Q2

REPORT INFORMATION
  Report Type: Spontaneous
  Country: ES (occurrence: ES)
  Receive Date: 20180519
  Receipt Date: 20180519
  Transmission Date: 20180711
  Serious: Yes (Life-Threatening, Hospitalization, Disabling)
  Sender: FDA-Public Use
  Company Number: ES-ABBVIE-18K-144-2361231-00

PATIENT
  Age: 66 Year
  Sex: Male
  Weight: 85 kg

DRUGS (11)
  1. ARAVA [Concomitant]
     Active Substance: LEFLUNOMIDE
     Indication: PRODUCT USED FOR UNKNOWN INDICATION
     Dosage: 10 MG COMPRIMIDOS RECUBIERTOS CON PELICULA, 30 COMPRIMIDOS (FRASCO)
     Route: 048
     Dates: start: 20151210
  2. SYMBICORT [Concomitant]
     Active Substance: BUDESONIDE\FORMOTEROL FUMARATE DIHYDRATE
     Indication: PRODUCT USED FOR UNKNOWN INDICATION
     Dosage: 160 MCG/4,5 MCG/INHALACION  POLVO PARA INHALACION , 1 INHALADOR DE 120 DOSIS
     Route: 055
     Dates: start: 20170501
  3. HUMIRA [Suspect]
     Active Substance: ADALIMUMAB
     Indication: ARTHRITIS
     Route: 058
     Dates: start: 20180326, end: 20180410
  4. TRADONAL [Concomitant]
     Active Substance: TRAMADOL HYDROCHLORIDE
     Indication: PRODUCT USED FOR UNKNOWN INDICATION
     Dosage: RETARD 50 MG CAPSULAS DURAS DE LIBERACION PROLONGADA, 60 C?PSULAS
     Dates: start: 20171012
  5. EKLIRA GENUAIR [Concomitant]
     Active Substance: ACLIDINIUM BROMIDE
     Indication: PRODUCT USED FOR UNKNOWN INDICATION
     Dosage: 322 MICROGRAMOS POLVO PARA INHALACION , 1 INHALADOR DE 60 DOSIS
     Dates: start: 20150520
  6. ENALAPRIL [Concomitant]
     Active Substance: ENALAPRIL
     Indication: PRODUCT USED FOR UNKNOWN INDICATION
     Dosage: CINFA 20 MG COMPRIMIDOS EFG, 28 COMPRIMIDOS
     Route: 048
     Dates: start: 20080520
  7. BISOPROLOL NORMON [Concomitant]
     Indication: PRODUCT USED FOR UNKNOWN INDICATION
     Dosage: 2,5 MG COMPRIMIDOS RECUBIERTOS CON PELICULA EFG , 28 COMPRIMIDOS
     Dates: start: 20171226
  8. CLOPIDOGREL [Concomitant]
     Active Substance: CLOPIDOGREL BISULFATE
     Indication: PRODUCT USED FOR UNKNOWN INDICATION
     Dosage: (7300A)
     Dates: start: 20171226
  9. EUTIROX [Concomitant]
     Active Substance: LEVOTHYROXINE SODIUM
     Indication: PRODUCT USED FOR UNKNOWN INDICATION
     Dosage: 1 AL D?A. (125 MICROGRAMOS COMPRIMIDOS , 100 COMPRIMIDOS)
     Route: 048
     Dates: start: 20000501
  10. CRESTOR [Concomitant]
     Active Substance: ROSUVASTATIN CALCIUM
     Indication: PRODUCT USED FOR UNKNOWN INDICATION
     Dosage: 20 MG COMPRIMIDOS RECUBIERTOS CON PELICULA , 28 COMPRIMIDOS
     Dates: start: 20171226
  11. TRIFLUSAL CINFA [Concomitant]
     Indication: PRODUCT USED FOR UNKNOWN INDICATION
     Dosage: 300 MG CAPSULAS  DURAS EFG, 50 C?PSULAS
     Dates: start: 20171226

REACTIONS (1)
  - Photosensitivity reaction [Not Recovered/Not Resolved]

NARRATIVE: CASE EVENT DATE: 20180326
